FAERS Safety Report 4715887-2 (Version None)
Quarter: 2005Q3

REPORT INFORMATION
  Report Type: 
  Country: None (occurrence: None)
  Receive Date: 20050718
  Receipt Date: 20050707
  Transmission Date: 20060218
  Serious: Yes (Hospitalization)
  Sender: FDA-Public Use
  Company Number: US-ROCHE-410336

PATIENT
  Age: 27 Year
  Sex: Male

DRUGS (11)
  1. KLONOPIN [Suspect]
     Indication: DRUG USE FOR UNKNOWN INDICATION
     Route: 048
     Dates: start: 20050406, end: 20050406
  2. SOMA [Suspect]
     Indication: DRUG USE FOR UNKNOWN INDICATION
     Route: 065
     Dates: start: 20050406, end: 20050406
  3. LEXAPRO [Suspect]
     Indication: DEPRESSION
     Route: 048
     Dates: end: 20050406
  4. LEXAPRO [Suspect]
     Route: 048
     Dates: start: 20050412
  5. RELAFEN [Suspect]
     Indication: BACK PAIN
     Route: 065
     Dates: start: 20050415
  6. CYPROHEPTADINE HCL [Concomitant]
  7. CLARITIN [Concomitant]
  8. INDERAL [Concomitant]
  9. DOXYCYCLINE [Concomitant]
  10. MELATONIN [Concomitant]
  11. HYDROXYZINE [Concomitant]

REACTIONS (9)
  - AGITATION [None]
  - DRUG SCREEN FALSE POSITIVE [None]
  - GAIT DISTURBANCE [None]
  - IRRITABILITY [None]
  - MULTIPLE DRUG OVERDOSE [None]
  - MULTIPLE DRUG OVERDOSE ACCIDENTAL [None]
  - PSYCHOMOTOR RETARDATION [None]
  - SEDATION [None]
  - STUPOR [None]
